FAERS Safety Report 24243085 (Version 1)
Quarter: 2024Q3

REPORT INFORMATION
  Report Type: Report from Study
  Country: US (occurrence: None)
  Receive Date: 20240823
  Receipt Date: 20240823
  Transmission Date: 20241017
  Serious: Yes (Hospitalization)
  Sender: ASTRAZENECA
  Company Number: 2022A151977

PATIENT
  Sex: Male

DRUGS (1)
  1. CALQUENCE [Suspect]
     Active Substance: ACALABRUTINIB
     Indication: Chronic lymphocytic leukaemia
     Route: 048

REACTIONS (9)
  - Renal disorder [Unknown]
  - Fluid intake reduced [Unknown]
  - Ammonia abnormal [Unknown]
  - Anxiety [Unknown]
  - Anaemia [Unknown]
  - Fatigue [Unknown]
  - Insurance issue [Unknown]
  - Product dose omission issue [Unknown]
  - Blood iron decreased [Unknown]
